FAERS Safety Report 5626442-4 (Version None)
Quarter: 2008Q1

REPORT INFORMATION
  Report Type: 
  Country: None (occurrence: None)
  Receive Date: 20080211
  Receipt Date: 20080128
  Transmission Date: 20080703
  Serious: Yes (Hospitalization)
  Sender: FDA-Public Use
  Company Number: A-CH2007-18734

PATIENT
  Sex: Female

DRUGS (1)
  1. TRACLEER [Suspect]
     Indication: DRUG USE FOR UNKNOWN INDICATION
     Dosage: 672.5 MG, BID, ORAL
     Route: 048
     Dates: start: 20071101

REACTIONS (4)
  - EPISTAXIS [None]
  - FATIGUE [None]
  - HAEMOPTYSIS [None]
  - MULTIPLE MYELOMA [None]
